FAERS Safety Report 12549236 (Version 3)
Quarter: 2016Q3

REPORT INFORMATION
  Report Type: Report from Study
  Country: US (occurrence: US)
  Receive Date: 20160712
  Receipt Date: 20160816
  Transmission Date: 20161109
  Serious: Yes (Other)
  Sender: FDA-Public Use
  Company Number: US-GILEAD-2016-0222721

PATIENT
  Age: 74 Year
  Sex: Female
  Weight: 88.44 kg

DRUGS (16)
  1. BUMETANIDE. [Concomitant]
     Active Substance: BUMETANIDE
  2. CALTRATE 600+D [Concomitant]
  3. ELIQUIS [Concomitant]
     Active Substance: APIXABAN
  4. CLOPIDOGREL [Concomitant]
     Active Substance: CLOPIDOGREL BISULFATE
  5. FISH OIL [Concomitant]
     Active Substance: FISH OIL
  6. DEXILANT [Concomitant]
     Active Substance: DEXLANSOPRAZOLE
  7. TIKOSYN [Concomitant]
     Active Substance: DOFETILIDE
  8. BENZONATATE. [Concomitant]
     Active Substance: BENZONATATE
  9. LEVOTHYROXINE. [Concomitant]
     Active Substance: LEVOTHYROXINE
  10. SILDENAFIL. [Concomitant]
     Active Substance: SILDENAFIL
  11. AMBRISENTAN [Suspect]
     Active Substance: AMBRISENTAN
     Indication: PULMONARY ARTERIAL HYPERTENSION
     Dosage: 10 MG, QD
     Route: 048
     Dates: start: 201510
  12. VITAMINS WITH MINERALS [Concomitant]
     Active Substance: MINERALS\VITAMINS
  13. TYVASO [Suspect]
     Active Substance: TREPROSTINIL
     Indication: PRODUCT USED FOR UNKNOWN INDICATION
     Dosage: 6 BREATHS PER SESSION
     Route: 055
  14. TYVASO [Suspect]
     Active Substance: TREPROSTINIL
     Dosage: 3 BREATHS PER SESSION
     Route: 055
  15. ATORVASTIN [Concomitant]
     Active Substance: ATORVASTATIN
  16. KLOR-CON [Concomitant]
     Active Substance: POTASSIUM CHLORIDE

REACTIONS (4)
  - Constipation [Unknown]
  - Syncope [Recovered/Resolved]
  - Hypotension [Recovered/Resolved]
  - Loss of consciousness [Unknown]

NARRATIVE: CASE EVENT DATE: 20160705
